FAERS Safety Report 4462536-7 (Version None)
Quarter: 2004Q3

REPORT INFORMATION
  Report Type: 
  Country: None (occurrence: None)
  Receive Date: 20040924
  Receipt Date: 20040908
  Transmission Date: 20050211
  Serious: Yes (Death)
  Sender: FDA-Public Use
  Company Number: 8006993

PATIENT
  Age: 14 Month
  Sex: Male

DRUGS (9)
  1. KEPPRA [Suspect]
     Indication: EPILEPSY
     Dosage: PO
     Route: 048
  2. LAMOTRIGINE [Concomitant]
  3. PHENOBARBITAL TAB [Concomitant]
  4. MOTILIUM [Concomitant]
  5. LOGASTRIC [Concomitant]
  6. LANSOYL [Concomitant]
  7. MORPHINE [Concomitant]
  8. TEMESTA [Concomitant]
  9. SIRDALUD [Concomitant]

REACTIONS (1)
  - SUDDEN DEATH [None]
